FAERS Safety Report 8254790-0 (Version None)
Quarter: 2012Q2

REPORT INFORMATION
  Report Type: 
  Country: None (occurrence: None)
  Receive Date: 20120403
  Receipt Date: 20120326
  Transmission Date: 20120825
  Serious: Yes (Death)
  Sender: FDA-Public Use
  Company Number: PHEH2011US013031

PATIENT
  Sex: Male

DRUGS (2)
  1. SPRYCEL [Suspect]
  2. GLEEVEC [Suspect]
     Dosage: 400 MG, DAILY(ONE TABLET ON DAYS 12-14 OF EACH CYCLE)
     Route: 048
     Dates: start: 20100801, end: 20110210

REACTIONS (2)
  - RESPIRATORY FAILURE [None]
  - ACUTE RESPIRATORY DISTRESS SYNDROME [None]
